FAERS Safety Report 4339507-4 (Version None)
Quarter: 2004Q2

REPORT INFORMATION
  Report Type: 
  Country: None (occurrence: None)
  Receive Date: 20040415
  Receipt Date: 20040113
  Transmission Date: 20050107
  Serious: Yes (Death, Hospitalization)
  Sender: FDA-Public Use
  Company Number: PHNU2004DE00509

PATIENT
  Age: 68 Year
  Sex: Male
  Weight: 85 kg

DRUGS (7)
  1. ZOMETA [Suspect]
     Indication: METASTASES TO BONE
     Dosage: 4 MG, QMO
     Dates: start: 20031106, end: 20040312
  2. LUPRON [Suspect]
     Dosage: 1 DF, Q3MO
     Dates: start: 20031201, end: 20040312
  3. NOVALGIN [Concomitant]
     Indication: PAIN
     Dosage: 40 DF, QID
     Route: 048
     Dates: start: 20031001
  4. ARTHOTEC FORTE [Concomitant]
     Indication: PAIN
     Dosage: 1 DF, BID
     Route: 048
     Dates: start: 20031001
  5. OMEPRAZOLE [Concomitant]
     Indication: GASTRIC DISORDER
     Dosage: 20 MG, QD
     Route: 048
     Dates: start: 20031001
  6. ALLOPURINOL [Concomitant]
     Indication: HYPERURICAEMIA
     Dosage: 150 MG, QD
     Route: 048
     Dates: start: 20031001
  7. NORFLOXACIN [Concomitant]
     Dosage: 1 DF, BID
     Route: 048

REACTIONS (12)
  - BALANCE DISORDER [None]
  - BLADDER CATHETER REPLACEMENT [None]
  - CATHETER RELATED COMPLICATION [None]
  - CEREBROVASCULAR ACCIDENT [None]
  - FATIGUE [None]
  - GENERAL PHYSICAL HEALTH DETERIORATION [None]
  - HEMIPARESIS [None]
  - HYDRONEPHROSIS [None]
  - INSOMNIA [None]
  - PNEUMONIA [None]
  - RESTLESSNESS [None]
  - SOMNOLENCE [None]
